FAERS Safety Report 21508191 (Version 2)
Quarter: 2024Q1

REPORT INFORMATION
  Report Type: Report from Study
  Country: FR (occurrence: FR)
  Receive Date: 20221026
  Receipt Date: 20240327
  Transmission Date: 20240409
  Serious: Yes (Death, Other)
  Sender: FDA-Public Use
  Company Number: FR-STADA-260081

PATIENT
  Age: 40 Year
  Sex: Female

DRUGS (13)
  1. DIAZEPAM [Suspect]
     Active Substance: DIAZEPAM
     Indication: Substance use
  2. NORDAZEPAM [Suspect]
     Active Substance: NORDAZEPAM
     Indication: Substance use
  3. TRAMADOL HYDROCHLORIDE [Suspect]
     Active Substance: TRAMADOL HYDROCHLORIDE
     Indication: Substance use
  4. OXOMEMAZINE [Suspect]
     Active Substance: OXOMEMAZINE
     Indication: Substance use
  5. PHOLCODINE [Suspect]
     Active Substance: PHOLCODINE
     Indication: Substance use
  6. LYRICA [Suspect]
     Active Substance: PREGABALIN
     Indication: Pain
  7. OXAZEPAM [Suspect]
     Active Substance: OXAZEPAM
     Indication: Substance use
  8. PREGABALIN [Suspect]
     Active Substance: PREGABALIN
     Indication: Product used for unknown indication
  9. OMEPRAZOLE [Concomitant]
     Active Substance: OMEPRAZOLE
     Indication: Product used for unknown indication
  10. INSULIN DETEMIR [Concomitant]
     Active Substance: INSULIN DETEMIR
     Indication: Type 1 diabetes mellitus
  11. LORMETAZEPAM [Concomitant]
     Active Substance: LORMETAZEPAM
     Indication: Product used for unknown indication
  12. SITAGLIPTIN [Concomitant]
     Active Substance: SITAGLIPTIN
     Indication: Type 1 diabetes mellitus
  13. TRAMADOL [Concomitant]
     Active Substance: TRAMADOL\TRAMADOL HYDROCHLORIDE
     Indication: Product used for unknown indication

REACTIONS (6)
  - Substance abuse [Fatal]
  - Toxicity to various agents [Fatal]
  - Toxicity to various agents [Fatal]
  - Intentional overdose [Fatal]
  - Lung disorder [Fatal]
  - Intentional product misuse [Fatal]
